FAERS Safety Report 15765512 (Version 1)
Quarter: 2018Q4

REPORT INFORMATION
  Report Type: Spontaneous
  Country: US (occurrence: US)
  Receive Date: 20181227
  Receipt Date: 20181227
  Transmission Date: 20190205
  Serious: No
  Sender: FDA-Public Use
  Company Number: US-SA-2018SA389204

PATIENT
  Sex: Female

DRUGS (6)
  1. AMBIEN CR [Suspect]
     Active Substance: ZOLPIDEM TARTRATE
     Dosage: 12.5 UNK
     Route: 065
  2. ZYPREXA [Concomitant]
     Active Substance: OLANZAPINE
  3. XANAX [Concomitant]
     Active Substance: ALPRAZOLAM
  4. AMBIEN CR [Suspect]
     Active Substance: ZOLPIDEM TARTRATE
     Dosage: 6.25 UNK
     Route: 065
  5. AMBIEN CR [Suspect]
     Active Substance: ZOLPIDEM TARTRATE
     Dosage: 10 MG, UNK
     Route: 065
  6. TRAZODONE [Concomitant]
     Active Substance: TRAZODONE HYDROCHLORIDE

REACTIONS (2)
  - Somnambulism [Unknown]
  - Drug ineffective [Unknown]
